FAERS Safety Report 4368695-9 (Version None)
Quarter: 2004Q2

REPORT INFORMATION
  Report Type: 
  Country: None (occurrence: None)
  Receive Date: 20040528
  Receipt Date: 20040513
  Transmission Date: 20050107
  Serious: Yes (Hospitalization)
  Sender: FDA-Public Use
  Company Number: JP-JNJFOC-20040504733

PATIENT
  Age: 71 Year
  Sex: Female

DRUGS (2)
  1. LEVOFLOXACIN [Suspect]
     Indication: GASTROENTERITIS BACTERIAL
     Dosage: ORAL
     Route: 048
     Dates: start: 20030801
  2. BERBERINE CHLORIDE (BERBERINE HYDROCHLORIDE) [Concomitant]

REACTIONS (10)
  - ASCITES [None]
  - DIARRHOEA HAEMORRHAGIC [None]
  - DISSEMINATED INTRAVASCULAR COAGULATION [None]
  - ENTEROCOLITIS HAEMORRHAGIC [None]
  - FUNGUS STOOL IDENTIFIED [None]
  - GASTROENTERITIS ESCHERICHIA COLI [None]
  - INFLAMMATION [None]
  - INTESTINAL MUCOSAL HYPERTROPHY [None]
  - PLATELET COUNT DECREASED [None]
  - TENDERNESS [None]
